FAERS Safety Report 8134324-1 (Version None)
Quarter: 2012Q1

REPORT INFORMATION
  Report Type: 
  Country: None (occurrence: None)
  Receive Date: 20120210
  Receipt Date: 20120126
  Transmission Date: 20120608
  Serious: Yes (Hospitalization)
  Sender: FDA-Public Use
  Company Number: EU-2012-10024

PATIENT
  Age: 80 Year
  Sex: Male

DRUGS (9)
  1. TIOTROPIUM BROMIDE (TIOTROPIUM BROMIDE) [Concomitant]
  2. TAMSULOSIN (TAMSULOSIN HYDROCHLORIDE) [Concomitant]
  3. SALMETEROL (SALMETEROL) [Concomitant]
  4. FLUTICASONE PROPIONATE [Concomitant]
  5. VERAPAMIL [Concomitant]
  6. CLOPIDOGREL [Concomitant]
  7. CILOSTAZOL [Suspect]
     Indication: INTERMITTENT CLAUDICATION
     Dosage: 200 MG MILLIGRAM(S), DAILY DOSE, ORAL
     Route: 048
     Dates: start: 20110518
  8. DUTASTERIDE (DUTASTERIDE) [Concomitant]
  9. LANSOPRAZOLE [Concomitant]

REACTIONS (2)
  - ACUTE PULMONARY OEDEMA [None]
  - TACHYCARDIA [None]
